FAERS Safety Report 10333499 (Version 2)
Quarter: 2015Q1

REPORT INFORMATION
  Report Type: Report from Study
  Country: US (occurrence: US)
  Receive Date: 20140722
  Receipt Date: 20150302
  Transmission Date: 20150720
  Serious: Yes (Hospitalization)
  Sender: FDA-Public Use
  Company Number: US-009507513-1407USA009007

PATIENT
  Age: 70 Year
  Sex: Female
  Weight: 42.5 kg

DRUGS (12)
  1. PEMBROLIZUMAB. [Suspect]
     Active Substance: PEMBROLIZUMAB
     Indication: METASTATIC MALIGNANT MELANOMA
     Dosage: 10 MG/KG, QOW
     Route: 042
     Dates: start: 20140530
  2. OXYCODONE [Concomitant]
     Active Substance: OXYCODONE
  3. LYRICA [Concomitant]
     Active Substance: PREGABALIN
  4. SYNTHROID [Concomitant]
     Active Substance: LEVOTHYROXINE SODIUM
  5. PROTONIX [Concomitant]
     Active Substance: PANTOPRAZOLE SODIUM
  6. CARBOXYMETHYLCELLULOSE SODIUM. [Concomitant]
     Active Substance: CARBOXYMETHYLCELLULOSE SODIUM
  7. COLACE [Concomitant]
     Active Substance: DOCUSATE SODIUM
  8. OXYCONTIN [Concomitant]
     Active Substance: OXYCODONE HYDROCHLORIDE
  9. TRAZODONE HYDROCHLORIDE. [Concomitant]
     Active Substance: TRAZODONE HYDROCHLORIDE
  10. SENNA [Concomitant]
     Active Substance: SENNA LEAF\SENNOSIDES\SENNOSIDES A AND B
  11. KEPPRA [Concomitant]
     Active Substance: LEVETIRACETAM
  12. HYDROCORTISONE. [Concomitant]
     Active Substance: HYDROCORTISONE

REACTIONS (3)
  - Fatigue [Unknown]
  - Somnolence [Unknown]
  - Eyelid oedema [Unknown]

NARRATIVE: CASE EVENT DATE: 20140716
